FAERS Safety Report 4547338-5 (Version None)
Quarter: 2005Q1

REPORT INFORMATION
  Report Type: 
  Country: None (occurrence: None)
  Receive Date: 20050107
  Receipt Date: 20050106
  Transmission Date: 20050727
  Serious: Yes (Death, Life-Threatening, Hospitalization)
  Sender: FDA-Public Use
  Company Number: PHEH2005US00575

PATIENT
  Age: 69 Year
  Sex: Male

DRUGS (2)
  1. TARCEVA [Concomitant]
  2. ZOMETA [Suspect]
     Indication: LUNG NEOPLASM MALIGNANT
     Dosage: 4 MG, UNK
     Dates: end: 20041227

REACTIONS (4)
  - ABDOMINAL PAIN [None]
  - CREATININE RENAL CLEARANCE DECREASED [None]
  - DEATH [None]
  - RENAL FAILURE [None]
